FAERS Safety Report 10712726 (Version 1)
Quarter: 2015Q1

REPORT INFORMATION
  Report Type: Spontaneous
  Country: US (occurrence: None)
  Receive Date: 20150114
  Receipt Date: 20150114
  Transmission Date: 20150721
  Serious: Yes (Death, Hospitalization)
  Sender: FDA-Public Use
  Company Number: None

PATIENT
  Age: 60 Year
  Sex: Female

DRUGS (19)
  1. CETUXIMAB [Suspect]
     Active Substance: CETUXIMAB
     Indication: HEAD AND NECK CANCER METASTATIC
     Dates: start: 20140821, end: 20150102
  2. XENADERM [Concomitant]
     Active Substance: BALSAM PERU OIL\CASTOR OIL\TRYPSIN
  3. HYDROCODONE [Concomitant]
     Active Substance: HYDROCODONE
  4. PAZOPANIB [Suspect]
     Active Substance: PAZOPANIB
     Indication: SQUAMOUS CELL CARCINOMA OF HEAD AND NECK
     Route: 048
     Dates: start: 20140821, end: 20141226
  5. PAZOPANIB [Suspect]
     Active Substance: PAZOPANIB
     Route: 048
     Dates: start: 20140821, end: 20141226
  6. FENTANYL. [Concomitant]
     Active Substance: FENTANYL
  7. OXYCODONE [Concomitant]
     Active Substance: OXYCODONE
  8. VASOLEX [Concomitant]
     Active Substance: BALSAM PERU\CASTOR OIL\TRYPSIN
  9. AMLODIPINE [Concomitant]
     Active Substance: AMLODIPINE BESYLATE
  10. NYSTATIN. [Concomitant]
     Active Substance: NYSTATIN
  11. CETUXIMAB [Suspect]
     Active Substance: CETUXIMAB
     Indication: SQUAMOUS CELL CARCINOMA OF HEAD AND NECK
     Dates: start: 20140821, end: 20150102
  12. MORPHINE [Concomitant]
     Active Substance: MORPHINE
  13. HEPARIN SODIUM. [Concomitant]
     Active Substance: HEPARIN SODIUM
  14. MEROPENEM. [Concomitant]
     Active Substance: MEROPENEM
  15. SCOPOLAMINE [Concomitant]
     Active Substance: SCOPOLAMINE
  16. LEVOTHYROXINE [Concomitant]
     Active Substance: LEVOTHYROXINE
  17. LIDOCAINE-PRILOCAINE [Concomitant]
     Active Substance: LIDOCAINE\PRILOCAINE
  18. POLYETHYLENE GLYCOL [Concomitant]
     Active Substance: POLYETHYLENE GLYCOLS
  19. POTASSIUM CHLORIDE. [Concomitant]
     Active Substance: POTASSIUM CHLORIDE

REACTIONS (6)
  - Malignant neoplasm progression [None]
  - Metastases to lung [None]
  - Pleural effusion [None]
  - Squamous cell carcinoma of head and neck [None]
  - Pneumothorax [None]
  - Dehydration [None]

NARRATIVE: CASE EVENT DATE: 20150106
